FAERS Safety Report 7454830-2 (Version None)
Quarter: 2011Q2

REPORT INFORMATION
  Report Type: 
  Country: None (occurrence: None)
  Receive Date: 20110503
  Receipt Date: 20100604
  Transmission Date: 20111010
  Serious: No
  Sender: FDA-Public Use
  Company Number: US-PFIZER INC-2010070490

PATIENT
  Sex: Female
  Weight: 72.562 kg

DRUGS (1)
  1. DEPO-PROVERA [Suspect]
     Indication: CONTRACEPTION
     Dosage: UNK
     Dates: start: 20100525

REACTIONS (4)
  - DRUG INEFFECTIVE [None]
  - ABDOMINAL PAIN [None]
  - UNINTENDED PREGNANCY [None]
  - BACK PAIN [None]
